FAERS Safety Report 12215130 (Version 2)
Quarter: 2016Q2

REPORT INFORMATION
  Report Type: Spontaneous
  Country: SE (occurrence: SE)
  Receive Date: 20160328
  Receipt Date: 20160401
  Transmission Date: 20160815
  Serious: Yes (Hospitalization)
  Sender: FDA-Public Use
  Company Number: SE-JNJFOC-20160317548

PATIENT
  Age: 17 Year
  Sex: Female

DRUGS (1)
  1. CILEST [Suspect]
     Active Substance: ETHINYL ESTRADIOL\NORGESTIMATE
     Indication: DYSMENORRHOEA
     Route: 065

REACTIONS (8)
  - Product use issue [Unknown]
  - Cardiac disorder [Unknown]
  - Off label use [Unknown]
  - Cardiac valve disease [Unknown]
  - Pulmonary thrombosis [Unknown]
  - Oedema peripheral [Unknown]
  - Cardiac arrest [Unknown]
  - Arthralgia [Unknown]

NARRATIVE: CASE EVENT DATE: 2007
